FAERS Safety Report 26014301 (Version 1)
Quarter: 2025Q4

REPORT INFORMATION
  Report Type: Spontaneous
  Country: KR (occurrence: KR)
  Receive Date: 20251108
  Receipt Date: 20251108
  Transmission Date: 20260118
  Serious: Yes (Other)
  Sender: ROCHE
  Company Number: KR-ROCHE-10000427376

PATIENT
  Age: 77 Year
  Sex: Female

DRUGS (3)
  1. AVASTIN [Suspect]
     Active Substance: BEVACIZUMAB
     Indication: Ovarian cancer metastatic
     Route: 065
     Dates: start: 20240415
  2. OXALIPLATIN [Suspect]
     Active Substance: OXALIPLATIN
     Indication: Ovarian cancer metastatic
     Route: 065
     Dates: start: 20240415
  3. FLUOROURACIL [Suspect]
     Active Substance: FLUOROURACIL
     Indication: Ovarian cancer metastatic
     Route: 065
     Dates: start: 20240415

REACTIONS (3)
  - Neuropathy peripheral [Recovering/Resolving]
  - Nausea [Recovering/Resolving]
  - Fatigue [Recovering/Resolving]

NARRATIVE: CASE EVENT DATE: 20240723
